FAERS Safety Report 15966802 (Version 5)
Quarter: 2019Q2

REPORT INFORMATION
  Report Type: Spontaneous
  Country: FR (occurrence: FR)
  Receive Date: 20190215
  Receipt Date: 20190611
  Transmission Date: 20190711
  Serious: Yes (Hospitalization, Disabling, Other)
  Sender: FDA-Public Use
  Company Number: FR-MYLANLABS-2019M1012858

PATIENT
  Age: 73 Year
  Sex: Female
  Weight: 78 kg

DRUGS (12)
  1. DEXAMETHASONE. [Suspect]
     Active Substance: DEXAMETHASONE
     Indication: PLASMA CELL MYELOMA
     Dosage: 40 MILLIGRAM, QW
     Route: 041
     Dates: start: 20160205
  2. SOTALOL. [Concomitant]
     Active Substance: SOTALOL
     Indication: TACHYCARDIA
     Dosage: 160 MILLIGRAM, QD
     Route: 048
     Dates: start: 20160129
  3. REVLIMID [Suspect]
     Active Substance: LENALIDOMIDE
     Indication: PLASMA CELL MYELOMA
     Dosage: 25 MILLIGRAM, QD
     Route: 048
     Dates: start: 20160129
  4. DARATUMUMAB [Concomitant]
     Active Substance: DARATUMUMAB
     Indication: PLASMA CELL MYELOMA
     Dosage: 1200 MILLIGRAM, QW
     Route: 041
     Dates: start: 20160129
  5. PARACETAMOL [Concomitant]
     Active Substance: ACETAMINOPHEN
     Indication: PAIN PROPHYLAXIS
     Dosage: UNK
     Route: 065
  6. TARDYFERON [Concomitant]
     Active Substance: FERROUS SULFATE
     Indication: ANAEMIA PROPHYLAXIS
     Dosage: 160 MILLIGRAM, QD
     Route: 048
     Dates: start: 20160129
  7. ASPEGIC                            /00002701/ [Concomitant]
     Active Substance: ASPIRIN
     Indication: THROMBOSIS PROPHYLAXIS
     Dosage: 100 MILLIGRAM, QD
     Route: 048
     Dates: start: 20160129
  8. DARATUMUMAB [Concomitant]
     Active Substance: DARATUMUMAB
     Dosage: 1200 MILLIGRAM, QD
     Route: 041
     Dates: start: 20160205
  9. ZELITREX [Concomitant]
     Active Substance: VALACYCLOVIR HYDROCHLORIDE
     Indication: INFECTION PROPHYLAXIS
     Dosage: 1000 MILLIGRAM
     Route: 048
     Dates: start: 20160129
  10. LOXEN                              /00639802/ [Concomitant]
     Active Substance: NICARDIPINE HYDROCHLORIDE
     Indication: HYPERTENSION
     Dosage: 20 MILLIGRAM
     Route: 048
     Dates: start: 2015
  11. BACTRIM [Concomitant]
     Active Substance: SULFAMETHOXAZOLE\TRIMETHOPRIM
     Indication: INFECTION PROPHYLAXIS
     Dosage: 1 DOSAGE FORM, QW
     Route: 048
     Dates: start: 20160129
  12. APROVEL [Concomitant]
     Active Substance: IRBESARTAN
     Indication: HYPERTENSION
     Dosage: 150 MILLIGRAM, QD
     Route: 048
     Dates: start: 2015

REACTIONS (9)
  - Vomiting [Recovered/Resolved]
  - Neutropenia [Recovered/Resolved]
  - Diarrhoea [Recovered/Resolved]
  - Deep vein thrombosis [Recovered/Resolved]
  - Application site oedema [Recovered/Resolved]
  - Pulmonary embolism [Recovered/Resolved]
  - Viral infection [Recovered/Resolved]
  - Sinus bradycardia [Recovered/Resolved]
  - Nausea [Recovered/Resolved]

NARRATIVE: CASE EVENT DATE: 20160130
